FAERS Safety Report 9622240 (Version 2)
Quarter: 2013Q4

REPORT INFORMATION
  Report Type: Report from Study
  Country: BE (occurrence: BE)
  Receive Date: 20131015
  Receipt Date: 20131107
  Transmission Date: 20140711
  Serious: Yes (Hospitalization)
  Sender: FDA-Public Use
  Company Number: BE-PFIZER INC-2013289462

PATIENT
  Age: 69 Year
  Sex: Female
  Weight: 102 kg

DRUGS (13)
  1. IRINOTECAN HCL [Suspect]
     Indication: COLORECTAL CANCER METASTATIC
     Dosage: 180 MG/M2, DAY ONE OF EACH 14 DAY CYCLE
     Route: 042
     Dates: start: 20121129, end: 20130508
  2. FLUOROURACIL [Suspect]
     Indication: COLORECTAL CANCER METASTATIC
     Dosage: 400 MG/M2, ON DAY ONE OF EACH 14 DAY CYCLE. ROUTE: BOLUS INTRAVENOUSLY
     Route: 042
     Dates: start: 20121129, end: 20130508
  3. FLUOROURACIL [Suspect]
     Dosage: 2400 MG/M2, DAYS ONE AND TWO OF EACH 14 DAY CYCLE
     Route: 042
     Dates: start: 20121129, end: 20130508
  4. FOLINIC ACID [Suspect]
     Indication: COLORECTAL CANCER METASTATIC
     Dosage: 400 MG/M2, DAY ONE OF EACH 14 DAY CYCLE
     Route: 042
     Dates: start: 20121129, end: 20130508
  5. BLINDED THERAPY [Suspect]
     Indication: COLORECTAL CANCER METASTATIC
     Dosage: CYCLIC
     Dates: start: 20121129, end: 20130508
  6. BISOPROLOL [Concomitant]
     Indication: HYPERTENSION
     Dosage: UNK
     Dates: start: 2010
  7. OMEPRAZOLE [Concomitant]
     Indication: OESOPHAGITIS
     Dosage: UNK
     Dates: start: 2002
  8. STRUMAZOLE [Concomitant]
     Indication: HYPERTHYROIDISM
     Dosage: UNK
     Dates: start: 2006
  9. ZALDIAR [Concomitant]
     Indication: PAIN
     Dosage: UNK
     Dates: start: 2007
  10. COAPROVEL [Concomitant]
     Indication: HYPERTENSION
     Dosage: UNK
     Dates: start: 2004
  11. SERTRALINE [Concomitant]
     Indication: DEPRESSION
     Dosage: UNK
     Dates: start: 1998
  12. LAMICTAL [Concomitant]
     Indication: EPILEPSY
     Dosage: UNK
     Dates: start: 20130604
  13. DEPAKINE [Concomitant]
     Indication: EPILEPSY
     Dosage: UNK
     Dates: start: 20130530, end: 20130603

REACTIONS (1)
  - Hyperammonaemic encephalopathy [Recovered/Resolved]
